FAERS Safety Report 19405803 (Version 1)
Quarter: 2021Q2

REPORT INFORMATION
  Report Type: Report from Study
  Country: US (occurrence: US)
  Receive Date: 20210611
  Receipt Date: 20210611
  Transmission Date: 20210717
  Serious: No
  Sender: FDA-Public Use
  Company Number: NVSC2021US131741

PATIENT
  Sex: Female

DRUGS (1)
  1. MAYZENT [Suspect]
     Active Substance: SIPONIMOD
     Indication: MULTIPLE SCLEROSIS
     Dosage: 1 MG, OTHER (PATIENT WAS CURRENTLY ON STARTER PACK WHICH TITRATES UP TO DESIRED DOSAGE)
     Route: 048
     Dates: start: 20210602

REACTIONS (2)
  - Nausea [Unknown]
  - Vomiting [Unknown]
